FAERS Safety Report 7512319-6 (Version None)
Quarter: 2011Q2

REPORT INFORMATION
  Report Type: 
  Country: None (occurrence: None)
  Receive Date: 20110531
  Receipt Date: 20110517
  Transmission Date: 20111010
  Serious: Yes (Hospitalization, Other)
  Sender: FDA-Public Use
  Company Number: PHHY2011SE43000

PATIENT
  Sex: Female

DRUGS (3)
  1. TRILEPTAL [Suspect]
     Indication: EPILEPSY
     Dosage: UNK
     Route: 048
  2. KEPPRA [Suspect]
     Indication: EPILEPSY
  3. ARICEPT [Concomitant]

REACTIONS (7)
  - NORMOCHROMIC NORMOCYTIC ANAEMIA [None]
  - THROMBOCYTOPENIA [None]
  - PETIT MAL EPILEPSY [None]
  - ORTHOSTATIC HYPOTENSION [None]
  - HYPOVOLAEMIA [None]
  - EPILEPSY [None]
  - BLOOD PRESSURE SYSTOLIC DECREASED [None]
